FAERS Safety Report 7284090-7 (Version None)
Quarter: 2011Q1

REPORT INFORMATION
  Report Type: 
  Country: None (occurrence: None)
  Receive Date: 20110209
  Receipt Date: 20100212
  Transmission Date: 20110831
  Serious: No
  Sender: FDA-Public Use
  Company Number: US-PFIZER INC-2010019205

PATIENT
  Sex: Female

DRUGS (1)
  1. CADUET [Suspect]
     Dosage: AMLODIPINE: 10 MG/ATORVASTATIN: 10 MG
     Route: 048
     Dates: start: 20100210

REACTIONS (3)
  - HEADACHE [None]
  - FLUSHING [None]
  - NAUSEA [None]
